FAERS Safety Report 12165834 (Version 1)
Quarter: 2016Q1

REPORT INFORMATION
  Report Type: Spontaneous
  Country: US (occurrence: US)
  Receive Date: 20160309
  Receipt Date: 20160309
  Transmission Date: 20160526
  Serious: Yes (Other)
  Sender: FDA-Public Use
  Company Number: US-SA-2016SA046573

PATIENT
  Age: 94 Year
  Sex: Female

DRUGS (2)
  1. LANTUS SOLOSTAR [Suspect]
     Active Substance: INSULIN GLARGINE
     Indication: DIABETES MELLITUS
     Dosage: DOSE:10 UNIT(S)
     Route: 065
     Dates: start: 20110611, end: 20160229
  2. SOLOSTAR [Concomitant]
     Active Substance: DEVICE
     Dates: start: 20110611, end: 20160229

REACTIONS (1)
  - Dementia [Not Recovered/Not Resolved]
